FAERS Safety Report 7113842-9 (Version None)
Quarter: 2010Q4

REPORT INFORMATION
  Report Type: 
  Country: None (occurrence: None)
  Receive Date: 20101119
  Receipt Date: 20101109
  Transmission Date: 20110411
  Serious: Yes (Hospitalization)
  Sender: FDA-Public Use
  Company Number: US-GENZYME-MOZO-1000415

PATIENT
  Sex: Female
  Weight: 80.8 kg

DRUGS (10)
  1. MOZOBIL [Suspect]
     Indication: CHRONIC LYMPHOCYTIC LEUKAEMIA
     Dosage: 32550 MCG/KG, UNK
     Route: 042
     Dates: start: 20101018, end: 20101018
  2. RITUXIMAB [Suspect]
     Indication: CHRONIC LYMPHOCYTIC LEUKAEMIA
     Dosage: 720 MG, UNK
     Route: 065
     Dates: start: 20101011, end: 20101018
  3. PREMARIN [Concomitant]
     Indication: PRODUCT USED FOR UNKNOWN INDICATION
     Dosage: 0.625 MG, QD
     Dates: start: 19670101
  4. CENTRUM SILVER [Concomitant]
     Indication: PRODUCT USED FOR UNKNOWN INDICATION
     Dosage: QD
     Route: 048
     Dates: start: 19670101
  5. NORTRIPTYLINE [Concomitant]
     Indication: PRODUCT USED FOR UNKNOWN INDICATION
     Dosage: 25 MG, QD
     Route: 048
     Dates: start: 20101007
  6. ALLOPURINOL [Concomitant]
     Indication: TUMOUR LYSIS SYNDROME
     Dosage: 300 MG, QD
     Route: 048
     Dates: start: 20101011, end: 20101026
  7. MEROPENEM [Concomitant]
     Indication: ANTIBIOTIC THERAPY
     Dosage: 1 G, QDX3
     Route: 042
     Dates: start: 20101021, end: 20101023
  8. ZYVOX [Concomitant]
     Indication: ANTIBIOTIC THERAPY
     Dosage: 600 MG, Q12HR
     Route: 042
     Dates: start: 20101021, end: 20101023
  9. PROPOXYPHENE HYDROCHLORIDE [Concomitant]
     Indication: PAIN
     Dosage: 65 MG, Q4HR
     Dates: start: 20101021, end: 20101023
  10. ZOFRAN [Concomitant]
     Indication: NAUSEA
     Dosage: 8 MG, PRN
     Dates: start: 20101021, end: 20101023

REACTIONS (1)
  - HYPERSENSITIVITY [None]
